FAERS Safety Report 5381389-6 (Version None)
Quarter: 2007Q2

REPORT INFORMATION
  Report Type: 
  Country: None (occurrence: None)
  Receive Date: 20070629
  Receipt Date: 20060629
  Transmission Date: 20071010
  Serious: Yes (Death, Other)
  Sender: FDA-Public Use
  Company Number: 2006082379

PATIENT
  Sex: Male

DRUGS (1)
  1. ZOLOFT [Suspect]
     Indication: DEPRESSION
     Dates: start: 20010101

REACTIONS (4)
  - COMPLETED SUICIDE [None]
  - GASTRIC DISORDER [None]
  - INTENTIONAL SELF-INJURY [None]
  - SUICIDAL IDEATION [None]
